FAERS Safety Report 8866267 (Version 2)
Quarter: 2012Q4

REPORT INFORMATION
  Report Type: 
  Country: NZ (occurrence: NZ)
  Receive Date: 20121025
  Receipt Date: 20121113
  Transmission Date: 20130627
  Serious: Yes (Life-Threatening, Hospitalization)
  Sender: FDA-Public Use
  Company Number: NZ-B.I. PHARMACEUTICALS,INC./RIDGEFIELD-2012-AU-01787AU

PATIENT
  Age: 64 Year
  Sex: Female

DRUGS (3)
  1. PRADAXA [Suspect]
     Indication: ATRIAL FIBRILLATION
     Dosage: 300 mg
     Dates: start: 20110701, end: 20121018
  2. COZAAR PLUS [Concomitant]
     Dosage: 50/12.5 mg
  3. OMEPRAZOLE [Concomitant]

REACTIONS (1)
  - Gastric ulcer perforation [Recovered/Resolved]
